FAERS Safety Report 9154995 (Version 5)
Quarter: 2014Q1

REPORT INFORMATION
  Report Type: Spontaneous
  Country: US (occurrence: US)
  Receive Date: 20130311
  Receipt Date: 20140306
  Transmission Date: 20141002
  Serious: Yes (Hospitalization, Other)
  Sender: FDA-Public Use
  Company Number: US-MERCK-1303USA003981

PATIENT
  Sex: Female

DRUGS (3)
  1. FOSAMAX [Suspect]
     Indication: OSTEOPENIA
     Dosage: 70 MG, UNK
     Route: 048
     Dates: start: 20000101, end: 20100324
  2. FOSAMAX [Suspect]
     Indication: OSTEOPOROSIS
     Dosage: 10 MG, QD
     Route: 048
     Dates: end: 20100324
  3. LEVOTHYROXINE SODIUM [Concomitant]
     Indication: HYPOTHYROIDISM
     Dosage: 112 MICROGRAM, UNK

REACTIONS (28)
  - Open reduction of fracture [Unknown]
  - Knee arthroplasty [Unknown]
  - Hypoxia [Recovered/Resolved]
  - Femur fracture [Unknown]
  - Low turnover osteopathy [Unknown]
  - Pneumonia [Unknown]
  - Urinary tract infection [Unknown]
  - Rheumatoid arthritis [Unknown]
  - Calcium deficiency [Unknown]
  - Hypertension [Unknown]
  - Supraventricular extrasystoles [Unknown]
  - Back disorder [Unknown]
  - Urinary tract infection [Unknown]
  - Haematocrit decreased [Unknown]
  - Haemoglobin decreased [Unknown]
  - Sciatica [Unknown]
  - Viral infection [Unknown]
  - Intertrigo [Unknown]
  - Body tinea [Unknown]
  - Osteoarthritis [Unknown]
  - Spinal osteoarthritis [Unknown]
  - Pulmonary fibrosis [Unknown]
  - Chronic obstructive pulmonary disease [Not Recovered/Not Resolved]
  - Drug ineffective [Unknown]
  - Myalgia [Unknown]
  - Constipation [Unknown]
  - Gastrooesophageal reflux disease [Unknown]
  - Arthralgia [Not Recovered/Not Resolved]
